FAERS Safety Report 20738393 (Version 16)
Quarter: 2022Q3

REPORT INFORMATION
  Report Type: Spontaneous
  Country: CA (occurrence: CA)
  Receive Date: 20220422
  Receipt Date: 20220829
  Transmission Date: 20221027
  Serious: Yes (Hospitalization, Other)
  Sender: FDA-Public Use
  Company Number: CA-JNJFOC-20220441103

PATIENT
  Age: 41 Year
  Sex: Male

DRUGS (11)
  1. INVEGA SUSTENNA [Suspect]
     Active Substance: PALIPERIDONE PALMITATE
     Indication: Schizophrenia
     Route: 030
     Dates: start: 2016, end: 2017
  2. INVEGA SUSTENNA [Suspect]
     Active Substance: PALIPERIDONE PALMITATE
     Route: 030
  3. INVEGA SUSTENNA [Suspect]
     Active Substance: PALIPERIDONE PALMITATE
     Route: 030
  4. INVEGA SUSTENNA [Suspect]
     Active Substance: PALIPERIDONE PALMITATE
     Route: 030
  5. ABILIFY [Suspect]
     Active Substance: ARIPIPRAZOLE
     Indication: Product used for unknown indication
     Route: 065
  6. WELLBUTRIN XL [Concomitant]
     Active Substance: BUPROPION HYDROCHLORIDE
     Dosage: INCREASED TO 300 MG
  7. COGENTIN [Concomitant]
     Active Substance: BENZTROPINE MESYLATE
  8. CLONAZEPAM [Concomitant]
     Active Substance: CLONAZEPAM
  9. BACLOFEN [Concomitant]
     Active Substance: BACLOFEN
  10. LITHIUM [Concomitant]
     Active Substance: LITHIUM
  11. ZYPREXA [Concomitant]
     Active Substance: OLANZAPINE

REACTIONS (13)
  - Disability [Unknown]
  - Schizophrenia [Recovering/Resolving]
  - Neoplasm [Unknown]
  - Dystonia [Unknown]
  - Sexual dysfunction [Not Recovered/Not Resolved]
  - Blood prolactin increased [Unknown]
  - Feeling abnormal [Unknown]
  - Drug ineffective [Unknown]
  - Back pain [Unknown]
  - Apathy [Unknown]
  - Ejaculation disorder [Not Recovered/Not Resolved]
  - Renal pain [Unknown]
  - Renal disorder [Not Recovered/Not Resolved]

NARRATIVE: CASE EVENT DATE: 20160101
